FAERS Safety Report 9996316 (Version 1)
Quarter: 2014Q1

REPORT INFORMATION
  Report Type: Spontaneous
  Country: US (occurrence: None)
  Receive Date: 20140221
  Receipt Date: 20140221
  Transmission Date: 20141002
  Serious: No
  Sender: FDA-Public Use
  Company Number: 1000052600

PATIENT
  Age: 66 Year
  Sex: Female

DRUGS (4)
  1. TUDORZA PRESSAIR [Suspect]
     Indication: CHRONIC OBSTRUCTIVE PULMONARY DISEASE
     Dosage: 800MCG (400 MCG , 2 IN 1 D),  NOV/2013 DEC/2013
     Dates: start: 201311, end: 201312
  2. TUDORZA PRESSAIR [Suspect]
     Dates: start: 201312, end: 201312
  3. COMBIVENT (IPRATROPIUM BROMIDE, ALBUTEROL SULFATE) (IPRATROPIUM BROMIDE, [Concomitant]
  4. ADVAIR (FLUTICASEON PROPIONATE) (FLUTICASONE PROPIONATE) [Concomitant]

REACTIONS (3)
  - Rhinorrhoea [None]
  - Palpitations [None]
  - Intentional drug misuse [None]
